FAERS Safety Report 5813507-7 (Version None)
Quarter: 2008Q3

REPORT INFORMATION
  Report Type: 
  Country: None (occurrence: None)
  Receive Date: 20080717
  Receipt Date: 20080707
  Transmission Date: 20090109
  Serious: Yes (Death, Disabling, Other)
  Sender: FDA-Public Use
  Company Number: JP-ELI_LILLY_AND_COMPANY-JP200804005958

PATIENT
  Sex: Female
  Weight: 49 kg

DRUGS (10)
  1. GEMZAR [Suspect]
     Indication: PANCREATIC CARCINOMA STAGE IV
     Dosage: 1300 MG, OTHER
     Route: 042
     Dates: start: 20080415, end: 20080422
  2. BIO THREE [Concomitant]
     Indication: CONSTIPATION
     Dosage: 1 G, 3/D
     Route: 048
     Dates: start: 20080302, end: 20080521
  3. FOIPAN [Concomitant]
     Indication: PROPHYLAXIS
     Dosage: 2 D/F, 3/D
     Route: 048
     Dates: start: 20080302, end: 20080521
  4. PANCREATIN TRIPLE STRENGTH CAP [Concomitant]
     Indication: PANCREATIC ENZYMES
     Dosage: 1 G, 3/D
     Route: 048
     Dates: start: 20080302, end: 20080521
  5. GASMOTIN [Concomitant]
     Dosage: 1 D/F, 3/D
     Route: 048
     Dates: start: 20080309, end: 20080521
  6. TAKEPRON [Concomitant]
     Indication: HYPERCHLORHYDRIA
     Dosage: 15 MG, DAILY (1/D)
     Route: 048
     Dates: start: 20080302, end: 20080521
  7. ALOSENN                            /00476901/ [Concomitant]
     Indication: CONSTIPATION
     Dosage: 1 D/F, DAILY (1/D)
     Route: 048
     Dates: start: 20080302, end: 20080521
  8. SERENACE [Concomitant]
     Indication: SCHIZOPHRENIA
     Dosage: 3 MG, 2/D
     Route: 048
     Dates: end: 20080520
  9. AKINETON [Concomitant]
     Indication: SCHIZOPHRENIA
     Dosage: 1 MG, DAILY (1/D)
     Route: 048
     Dates: end: 20080520
  10. AMOBAN [Concomitant]
     Indication: INSOMNIA
     Dosage: 1 D/F, DAILY (1/D)
     Route: 048
     Dates: end: 20080520

REACTIONS (4)
  - CEREBRAL INFARCTION [None]
  - HEPATIC FUNCTION ABNORMAL [None]
  - MALIGNANT NEOPLASM PROGRESSION [None]
  - SEPSIS [None]
